FAERS Safety Report 9847229 (Version 2)
Quarter: 2014Q3

REPORT INFORMATION
  Report Type: Spontaneous
  Country: US (occurrence: US)
  Receive Date: 20140127
  Receipt Date: 20140820
  Transmission Date: 20150326
  Serious: Yes (Hospitalization, Other)
  Sender: FDA-Public Use
  Company Number: US-009507513-1401USA011465

PATIENT
  Sex: Female
  Weight: 59 kg

DRUGS (2)
  1. NUVARING [Suspect]
     Active Substance: ETHINYL ESTRADIOL\ETONOGESTREL
     Dosage: 0.12-0.015 MG/24HRS
     Route: 067
     Dates: start: 20080220
  2. NUVARING [Suspect]
     Active Substance: ETHINYL ESTRADIOL\ETONOGESTREL
     Indication: CONTRACEPTION
     Dosage: 0.12-0.015 MG/24HRS
     Route: 067
     Dates: start: 20050524

REACTIONS (12)
  - Moyamoya disease [Unknown]
  - Cerebral artery occlusion [Unknown]
  - Migraine [Unknown]
  - Blood immunoglobulin M increased [Unknown]
  - Migraine [Unknown]
  - Cerebral infarction [Not Recovered/Not Resolved]
  - Craniotomy [Unknown]
  - Head injury [Unknown]
  - Subdural haemorrhage [Unknown]
  - Blood homocysteine increased [Unknown]
  - Dysphagia [Unknown]
  - Vascular graft [Unknown]

NARRATIVE: CASE EVENT DATE: 20090517
